FAERS Safety Report 4686581-1 (Version None)
Quarter: 2005Q2

REPORT INFORMATION
  Report Type: 
  Country: None (occurrence: None)
  Receive Date: 20050606
  Receipt Date: 20050525
  Transmission Date: 20051028
  Serious: Yes (Hospitalization)
  Sender: FDA-Public Use
  Company Number: USA050289830

PATIENT
  Age: 71 Year
  Sex: Female
  Weight: 68.0396 kg

DRUGS (10)
  1. FORTEO [Suspect]
     Indication: OSTEOPOROSIS
     Dosage: 20 UG/1 DAY
     Dates: start: 20041201, end: 20050415
  2. COUMADIN [Concomitant]
  3. RESTORIL [Concomitant]
  4. ATIVAN [Concomitant]
  5. NEXIUM [Concomitant]
  6. CALCIUM GLUCONATE [Concomitant]
  7. TOPROL-XL [Concomitant]
  8. LISINOPRIL [Concomitant]
  9. HYDROCHLORITHIAZIDE [Concomitant]
  10. GLUCOSAMINE [Concomitant]

REACTIONS (15)
  - ABDOMINAL PAIN UPPER [None]
  - ARTHRALGIA [None]
  - BACK PAIN [None]
  - BILE DUCT STONE [None]
  - BONE PAIN [None]
  - CHEST WALL PAIN [None]
  - INFECTION [None]
  - INJECTION SITE ERYTHEMA [None]
  - INJECTION SITE HAEMORRHAGE [None]
  - INJECTION SITE PAIN [None]
  - PAIN IN EXTREMITY [None]
  - PHARMACEUTICAL PRODUCT COMPLAINT [None]
  - POST PROCEDURAL DIARRHOEA [None]
  - STOMACH DISCOMFORT [None]
  - VOMITING [None]
